FAERS Safety Report 4728332-8 (Version None)
Quarter: 2005Q3

REPORT INFORMATION
  Report Type: 
  Country: None (occurrence: None)
  Receive Date: 20050727
  Receipt Date: 20050714
  Transmission Date: 20060218
  Serious: Yes (Hospitalization, Other)
  Sender: FDA-Public Use
  Company Number: 2005080268

PATIENT
  Sex: Female

DRUGS (2)
  1. SINEQUAN [Suspect]
     Indication: MAJOR DEPRESSION
     Dosage: 150 MG (150 MG, 1 IN 1 D), ORAL
     Route: 048
  2. ELAVIL [Suspect]
     Indication: ILL-DEFINED DISORDER
     Dosage: 25 MG (25 MG, 1 IN 1 D), ORAL
     Route: 048

REACTIONS (1)
  - RENAL NEOPLASM [None]
